FAERS Safety Report 9770394 (Version 1)
Quarter: 2013Q4

REPORT INFORMATION
  Report Type: Spontaneous
  Country: FR (occurrence: FR)
  Receive Date: 20131218
  Receipt Date: 20131218
  Transmission Date: 20140711
  Serious: Yes (Hospitalization)
  Sender: FDA-Public Use
  Company Number: FR-BRISTOL-MYERS SQUIBB COMPANY-19908821

PATIENT
  Age: 60 Year
  Sex: Male

DRUGS (2)
  1. TAXOL INJ [Suspect]
     Indication: LUNG ADENOCARCINOMA
     Dosage: 180MG:10SEP13,17SEP13,24SEP?190MG:08OC,15OC13?Q8D FOR 36DAYS?LAST DOSE:15OCT13
     Route: 042
     Dates: start: 20130910
  2. AVASTIN [Suspect]
     Indication: LUNG ADENOCARCINOMA
     Dosage: 25 MG/ML SOLN FOR INF?Q8D/29DAYS?1000MG:10SEP13,17SE,24SE?LAST DOSE:08OCT13:970MG
     Dates: start: 20130910

REACTIONS (1)
  - Pneumothorax [Not Recovered/Not Resolved]
